FAERS Safety Report 9768388 (Version 1)
Quarter: 2013Q4

REPORT INFORMATION
  Report Type: Spontaneous
  Country: US (occurrence: US)
  Receive Date: 20131217
  Receipt Date: 20131217
  Transmission Date: 20140711
  Serious: Yes (Other)
  Sender: FDA-Public Use
  Company Number: US-PFIZER INC-2013361427

PATIENT
  Age: 25 Year
  Sex: Female

DRUGS (3)
  1. LEVETIRACETAM [Suspect]
     Indication: CONVULSION
     Dosage: UNK
     Route: 065
  2. LEVETIRACETAM [Suspect]
     Dosage: TITRATED TO 3000 MG DAILY OVER 1WEEK
     Route: 065
  3. PHENYTOIN SODIUM [Suspect]
     Indication: CONVULSION
     Dosage: UNK
     Route: 065

REACTIONS (5)
  - Pancreatitis acute [Recovered/Resolved]
  - Transaminases increased [Recovered/Resolved]
  - Decreased appetite [Recovered/Resolved]
  - Nausea [Recovered/Resolved]
  - Drug ineffective [Unknown]
